FAERS Safety Report 8117207-2 (Version None)
Quarter: 2012Q1

REPORT INFORMATION
  Report Type: 
  Country: None (occurrence: None)
  Receive Date: 20120206
  Receipt Date: 20120201
  Transmission Date: 20120608
  Serious: Yes (Life-Threatening, Hospitalization)
  Sender: FDA-Public Use
  Company Number: NL-ASTRAZENECA-2012SE06890

PATIENT
  Sex: Female

DRUGS (2)
  1. SEROQUEL XR [Suspect]
     Indication: PSYCHOTIC DISORDER
     Dosage: 1600 MG TO 700 MG
     Route: 048
     Dates: start: 20090101
  2. CLOMIPRAMINE HCL [Concomitant]
     Dates: start: 20090101

REACTIONS (3)
  - FALL [None]
  - VENTRICULAR TACHYCARDIA [None]
  - SEDATION [None]
